FAERS Safety Report 24024386 (Version 5)
Quarter: 2024Q2

REPORT INFORMATION
  Report Type: Report from Study
  Country: CN (occurrence: CN)
  Receive Date: 20240628
  Receipt Date: 20240628
  Transmission Date: 20240716
  Serious: No
  Sender: FDA-Public Use
  Company Number: CN-ROCHE-3489026

PATIENT
  Age: 67 Year
  Sex: Female
  Weight: 62.9 kg

DRUGS (11)
  1. ALECTINIB [Suspect]
     Active Substance: ALECTINIB
     Indication: Non-small cell lung cancer metastatic
     Route: 048
     Dates: start: 20211122
  2. ALECTINIB [Suspect]
     Active Substance: ALECTINIB
     Route: 048
     Dates: start: 20210313
  3. METOCLOPRAMIDE [Concomitant]
     Active Substance: METOCLOPRAMIDE
     Route: 048
     Dates: start: 20211122
  4. COMPOUND PLATYCODON [Concomitant]
     Route: 048
     Dates: start: 20230823
  5. HERBALS [Concomitant]
     Active Substance: HERBALS
     Indication: Lacunar infarction
     Route: 042
     Dates: start: 20230508, end: 20230509
  6. ZOLEDRONIC ACID [Concomitant]
     Active Substance: ZOLEDRONIC ACID
     Indication: Metastases to bone
     Route: 042
     Dates: start: 20230508, end: 20230508
  7. PAMIDRONATE DISODIUM AND GLUCOSE [Concomitant]
     Indication: Metastases to bone
     Route: 042
     Dates: start: 20230320, end: 20230321
  8. GLUTATHIONE [Concomitant]
     Active Substance: GLUTATHIONE
     Indication: Liver injury
     Route: 042
     Dates: start: 20230320, end: 20230322
  9. CODEINE [Concomitant]
     Active Substance: CODEINE
     Indication: Analgesic therapy
     Route: 048
     Dates: start: 20230821
  10. COMPOUND PLATYCODON [Concomitant]
     Route: 048
     Dates: start: 20230823
  11. DAN SHEN FEN ZHEN (TRADITIONAL CHINESE MEDICINE) [Concomitant]

REACTIONS (5)
  - Alanine aminotransferase increased [Recovered/Resolved]
  - Blood alkaline phosphatase increased [Recovered/Resolved]
  - Blood triglycerides increased [Not Recovered/Not Resolved]
  - Aspartate aminotransferase increased [Recovered/Resolved]
  - Sinus bradycardia [Recovering/Resolving]

NARRATIVE: CASE EVENT DATE: 20230319
